FAERS Safety Report 13214406 (Version 1)
Quarter: 2017Q1

REPORT INFORMATION
  Report Type: Spontaneous
  Country: JP (occurrence: JP)
  Receive Date: 20170210
  Receipt Date: 20170210
  Transmission Date: 20170428
  Serious: Yes (Life-Threatening, Hospitalization, Other)
  Sender: FDA-Public Use
  Company Number: JP-PFIZER INC-2017021907

PATIENT
  Age: 73 Year
  Sex: Female
  Weight: 31.8 kg

DRUGS (1)
  1. RHEUMATREX [Suspect]
     Active Substance: METHOTREXATE SODIUM
     Indication: RHEUMATOID ARTHRITIS
     Dosage: 6 MG, WEEKLY
     Route: 048
     Dates: end: 20161205

REACTIONS (10)
  - Blood creatine phosphokinase increased [Unknown]
  - Haemodynamic instability [Unknown]
  - Haemorrhagic anaemia [Unknown]
  - Urinary retention [Recovered/Resolved]
  - Abscess jaw [Recovered/Resolved]
  - Femur fracture [Unknown]
  - Trismus [Unknown]
  - Fall [Unknown]
  - Liver function test increased [Unknown]
  - Pancytopenia [Recovered/Resolved]

NARRATIVE: CASE EVENT DATE: 20161022
